FAERS Safety Report 19997119 (Version 1)
Quarter: 2021Q4

REPORT INFORMATION
  Report Type: Spontaneous
  Country: FR (occurrence: FR)
  Receive Date: 20211025
  Receipt Date: 20211025
  Transmission Date: 20220303
  Serious: Yes (Hospitalization)
  Sender: FDA-Public Use
  Company Number: 2021A781515

PATIENT
  Age: 52 Year
  Sex: Male
  Weight: 131 kg

DRUGS (3)
  1. QUETIAPINE [Suspect]
     Active Substance: QUETIAPINE
     Indication: Major depression
     Dosage: 600.0MG UNKNOWN
     Route: 048
     Dates: end: 20210905
  2. LOXAPINE [Suspect]
     Active Substance: LOXAPINE
     Indication: Major depression
     Route: 048
     Dates: end: 20210905
  3. CYAMEMAZINE [Suspect]
     Active Substance: CYAMEMAZINE
     Indication: Major depression
     Dosage: 75.0MG UNKNOWN
     Route: 048
     Dates: end: 20210905

REACTIONS (1)
  - Neuroleptic malignant syndrome [Recovered/Resolved]

NARRATIVE: CASE EVENT DATE: 20210905
